FAERS Safety Report 4532682-8 (Version None)
Quarter: 2004Q4

REPORT INFORMATION
  Report Type: 
  Country: None (occurrence: None)
  Receive Date: 20041221
  Receipt Date: 20041213
  Transmission Date: 20050328
  Serious: Yes (Hospitalization)
  Sender: FDA-Public Use
  Company Number: PHRM2004FR03663

PATIENT
  Age: 27 Year
  Sex: Female

DRUGS (3)
  1. DAFLON [Suspect]
     Route: 048
  2. DOLIPRANE [Suspect]
     Route: 048
  3. PARLODEL [Suspect]
     Dosage: 1 DF/DAY
     Route: 048
     Dates: start: 20040926

REACTIONS (2)
  - EPILEPSY [None]
  - MALAISE [None]
